FAERS Safety Report 18034863 (Version 1)
Quarter: 2020Q3

REPORT INFORMATION
  Report Type: Report from Study
  Country: None (occurrence: ZA)
  Receive Date: 20200716
  Receipt Date: 20200716
  Transmission Date: 20201103
  Serious: Yes (Other)
  Sender: FDA-Public Use
  Company Number: ZA-ABBVIE-20K-143-3484011-00

PATIENT
  Age: 39 Year
  Sex: Male

DRUGS (8)
  1. ZANIDIP [Concomitant]
     Active Substance: LERCANIDIPINE HYDROCHLORIDE
     Indication: HYPERTENSION
  2. PRITOR [Concomitant]
     Indication: HYPERTENSION
  3. PURICOS [Concomitant]
     Active Substance: ALLOPURINOL
     Indication: GOUT
  4. PENTASA [Concomitant]
     Active Substance: MESALAMINE
     Indication: COLITIS ULCERATIVE
     Route: 048
     Dates: start: 2018
  5. HUMIRA [Suspect]
     Active Substance: ADALIMUMAB
     Indication: COLITIS ULCERATIVE
     Route: 058
     Dates: start: 20200110
  6. BILOCOR [Concomitant]
     Active Substance: BISOPROLOL FUMARATE
     Indication: HYPERTENSION
  7. ASPAVOR [Concomitant]
     Active Substance: ATORVASTATIN
     Indication: BLOOD CHOLESTEROL
  8. INDAPAMIDE. [Concomitant]
     Active Substance: INDAPAMIDE
     Indication: DIURETIC THERAPY
     Route: 048
     Dates: start: 2007

REACTIONS (2)
  - SARS-CoV-2 test positive [Unknown]
  - Sinusitis [Recovered/Resolved]

NARRATIVE: CASE EVENT DATE: 202007
